FAERS Safety Report 4834094-6 (Version None)
Quarter: 2005Q4

REPORT INFORMATION
  Report Type: 
  Country: None (occurrence: None)
  Receive Date: 20051115
  Receipt Date: 20051031
  Transmission Date: 20060501
  Serious: Yes (Life-Threatening)
  Sender: FDA-Public Use
  Company Number: 2005S1010716

PATIENT
  Sex: 0

DRUGS (1)
  1. LISINOPRIL [Suspect]
     Dosage: PO
     Route: 048

REACTIONS (2)
  - ANGIONEUROTIC OEDEMA [None]
  - CARDIOMYOPATHY [None]
